FAERS Safety Report 7912576-8 (Version None)
Quarter: 2011Q4

REPORT INFORMATION
  Report Type: 
  Country: None (occurrence: None)
  Receive Date: 20111114
  Receipt Date: 20111109
  Transmission Date: 20120403
  Serious: Yes (Death, Other)
  Sender: FDA-Public Use
  Company Number: US-ABBOTT-11P-163-0868269-00

PATIENT
  Age: 78 Year
  Sex: Male

DRUGS (20)
  1. DIAZEPAM [Concomitant]
     Indication: PRODUCT USED FOR UNKNOWN INDICATION
  2. COREG [Concomitant]
     Indication: PRODUCT USED FOR UNKNOWN INDICATION
  3. FOLIC ACID [Concomitant]
     Indication: PRODUCT USED FOR UNKNOWN INDICATION
  4. RELION INHALER [Concomitant]
     Indication: PRODUCT USED FOR UNKNOWN INDICATION
  5. METFORMIN [Concomitant]
     Indication: PRODUCT USED FOR UNKNOWN INDICATION
  6. LIPITOR [Concomitant]
     Indication: PRODUCT USED FOR UNKNOWN INDICATION
  7. PRILOSEC [Concomitant]
     Indication: PRODUCT USED FOR UNKNOWN INDICATION
  8. HUMIRA [Suspect]
     Indication: PSORIASIS
     Dates: start: 20090924, end: 20110322
  9. LANOXIN [Concomitant]
     Indication: PRODUCT USED FOR UNKNOWN INDICATION
  10. LANTUS [Concomitant]
     Indication: PRODUCT USED FOR UNKNOWN INDICATION
  11. CORDARONE [Concomitant]
     Indication: PRODUCT USED FOR UNKNOWN INDICATION
  12. ACCUPRIL [Concomitant]
     Indication: PRODUCT USED FOR UNKNOWN INDICATION
  13. LASIX [Concomitant]
     Indication: PRODUCT USED FOR UNKNOWN INDICATION
  14. LOPID [Concomitant]
     Indication: PRODUCT USED FOR UNKNOWN INDICATION
  15. ASPIRIN [Concomitant]
     Indication: PRODUCT USED FOR UNKNOWN INDICATION
  16. RANEXA [Concomitant]
     Indication: PRODUCT USED FOR UNKNOWN INDICATION
  17. HYDROCHLOROTHIAZIDE [Concomitant]
     Indication: PRODUCT USED FOR UNKNOWN INDICATION
  18. LOVAZA [Concomitant]
     Indication: PRODUCT USED FOR UNKNOWN INDICATION
  19. PLAVIX [Concomitant]
     Indication: PRODUCT USED FOR UNKNOWN INDICATION
  20. DARVOCET [Concomitant]
     Indication: PRODUCT USED FOR UNKNOWN INDICATION

REACTIONS (2)
  - OESOPHAGEAL CARCINOMA [None]
  - CARDIAC FAILURE CONGESTIVE [None]
